FAERS Safety Report 6292718-3 (Version None)
Quarter: 2009Q3

REPORT INFORMATION
  Report Type: 
  Country: None (occurrence: None)
  Receive Date: 20090731
  Receipt Date: 20090729
  Transmission Date: 20100115
  Serious: Yes (Hospitalization)
  Sender: FDA-Public Use
  Company Number: A0799257A

PATIENT
  Age: 24 Year
  Sex: Female

DRUGS (7)
  1. ARIXTRA [Suspect]
     Indication: DRUG USE FOR UNKNOWN INDICATION
     Dosage: 5MG PER DAY
     Route: 058
  2. ENOXAPARIN SODIUM [Suspect]
     Indication: DRUG USE FOR UNKNOWN INDICATION
     Dosage: 100MG PER DAY
     Route: 058
  3. FRAGMIN [Suspect]
     Indication: DRUG USE FOR UNKNOWN INDICATION
     Dosage: 12000IU PER DAY
     Route: 058
  4. ORGARAN [Suspect]
     Indication: DRUG USE FOR UNKNOWN INDICATION
     Dosage: 750IU TWICE PER DAY
     Route: 058
  5. ACETYLSALICYLIC ACID [Concomitant]
     Indication: DRUG USE FOR UNKNOWN INDICATION
     Route: 048
  6. BETAMETHASONE [Concomitant]
     Indication: DRUG USE FOR UNKNOWN INDICATION
     Route: 065
  7. HYDROCORTISONE [Concomitant]
     Indication: DRUG USE FOR UNKNOWN INDICATION
     Route: 061

REACTIONS (7)
  - DRUG EXPOSURE DURING PREGNANCY [None]
  - INJECTION SITE ERYTHEMA [None]
  - INJECTION SITE MACULE [None]
  - INJECTION SITE PRURITUS [None]
  - INJECTION SITE RASH [None]
  - PLATELET COUNT DECREASED [None]
  - TYPE IV HYPERSENSITIVITY REACTION [None]
